FAERS Safety Report 5519020-9 (Version None)
Quarter: 2007Q4

REPORT INFORMATION
  Report Type: 
  Country: None (occurrence: None)
  Receive Date: 20071116
  Receipt Date: 20071107
  Transmission Date: 20080405
  Serious: Yes (Hospitalization)
  Sender: FDA-Public Use
  Company Number: IT-WYE-G00572907

PATIENT
  Sex: Female

DRUGS (1)
  1. FAXINE [Suspect]
     Route: 048
     Dates: start: 20070129, end: 20070129

REACTIONS (5)
  - DYSPNOEA [None]
  - HYPERSENSITIVITY [None]
  - MUSCULAR WEAKNESS [None]
  - PYREXIA [None]
  - SWELLING FACE [None]
